FAERS Safety Report 7568030-9 (Version None)
Quarter: 2011Q2

REPORT INFORMATION
  Report Type: 
  Country: None (occurrence: None)
  Receive Date: 20110623
  Receipt Date: 20110613
  Transmission Date: 20111010
  Serious: Yes (Hospitalization, Other)
  Sender: FDA-Public Use
  Company Number: US-AMGEN-QUU373623

PATIENT
  Age: 54 Year
  Sex: Female
  Weight: 54.5 kg

DRUGS (2)
  1. ENBREL [Suspect]
  2. ENBREL [Suspect]
     Indication: PSORIASIS
     Dosage: 50 MG, 2 TIMES/WK
     Route: 058
     Dates: start: 20050501

REACTIONS (9)
  - PSORIASIS [None]
  - LARGE INTESTINE PERFORATION [None]
  - GINGIVITIS [None]
  - GINGIVAL DISORDER [None]
  - PROCEDURAL COMPLICATION [None]
  - MEMORY IMPAIRMENT [None]
  - PERIODONTAL DISEASE [None]
  - GINGIVAL RECESSION [None]
  - ORAL BACTERIAL INFECTION [None]
